FAERS Safety Report 4439600-1 (Version None)
Quarter: 2004Q3

REPORT INFORMATION
  Report Type: 
  Country: None (occurrence: None)
  Receive Date: 20040902
  Receipt Date: 20040322
  Transmission Date: 20050211
  Serious: Yes (Life-Threatening, Other)
  Sender: FDA-Public Use
  Company Number: 200411183FR

PATIENT
  Age: 31 Year
  Sex: Female

DRUGS (4)
  1. TAXOTERE [Suspect]
     Indication: BREAST CANCER
     Route: 042
     Dates: start: 20030819, end: 20030819
  2. FARMORUBICINE [Suspect]
     Indication: BREAST CANCER
     Route: 042
     Dates: start: 20030819, end: 20030819
  3. TRIATEC [Concomitant]
  4. ALDACTONE [Concomitant]

REACTIONS (2)
  - CARDIOMYOPATHY [None]
  - EJECTION FRACTION DECREASED [None]
